FAERS Safety Report 24857155 (Version 2)
Quarter: 2025Q1

REPORT INFORMATION
  Report Type: Report from Study
  Country: US (occurrence: US)
  Receive Date: 20250117
  Receipt Date: 20250204
  Transmission Date: 20250409
  Serious: Yes (Other)
  Sender: PFIZER
  Company Number: US-PFIZER INC-202400328544

PATIENT
  Age: 67 Year
  Sex: Male

DRUGS (2)
  1. TUKYSA [Suspect]
     Active Substance: TUCATINIB
     Dosage: 300 MG, 2X/DAY (2 TABLETS EVERY 12 HOURS)
     Route: 048
     Dates: start: 20240911
  2. TUKYSA [Suspect]
     Active Substance: TUCATINIB
     Dosage: 300MG TWICE DAILY ORALLY
     Route: 048
     Dates: start: 20240915

REACTIONS (5)
  - Haematochezia [Unknown]
  - Epistaxis [Unknown]
  - Hypoaesthesia [Unknown]
  - Product residue present [Unknown]
  - Anaemia [Unknown]

NARRATIVE: CASE EVENT DATE: 20240101
